FAERS Safety Report 5099948-7 (Version None)
Quarter: 2006Q3

REPORT INFORMATION
  Report Type: 
  Country: None (occurrence: None)
  Receive Date: 20060906
  Receipt Date: 20060825
  Transmission Date: 20061208
  Serious: Yes (Death)
  Sender: FDA-Public Use
  Company Number: 2006JP002913

PATIENT
  Age: 80 Year
  Sex: Male
  Weight: 61.5 kg

DRUGS (15)
  1. TACROLIMUS CAPSULES (TACROLIMUS CAPSULES) [Suspect]
     Indication: MYASTHENIA GRAVIS
     Dosage: SEE IMAGE
     Route: 048
     Dates: start: 20060623, end: 20060728
  2. TACROLIMUS CAPSULES (TACROLIMUS CAPSULES) [Suspect]
     Indication: MYASTHENIA GRAVIS
     Dosage: SEE IMAGE
     Route: 048
     Dates: start: 20060729, end: 20060730
  3. PREDNISOLONE [Suspect]
     Indication: MYASTHENIA GRAVIS
     Dosage: SEE IMAGE
     Route: 048
     Dates: start: 20060602, end: 20060720
  4. PREDNISOLONE [Suspect]
     Indication: MYASTHENIA GRAVIS
     Dosage: SEE IMAGE
     Route: 048
     Dates: start: 20060721, end: 20060727
  5. PREDNISOLONE [Suspect]
     Indication: MYASTHENIA GRAVIS
     Dosage: SEE IMAGE
     Route: 048
     Dates: start: 20060728, end: 20060730
  6. MESTINON [Concomitant]
  7. LANSOPRAZOLE [Concomitant]
  8. NEUROTROPIN (ORGAN LYSATE, STANDARDIZED) [Concomitant]
  9. DIART (AZOSEMIDE) [Concomitant]
  10. ALLOPURINOL [Concomitant]
  11. FERROMIA (FERROUS CITRATE) [Concomitant]
  12. MEXITIL [Concomitant]
  13. BASEN (VOGLIBOSE) [Concomitant]
  14. ACTOS [Concomitant]
  15. MAGNESIUM OXIDE (MAGNESIUM OXIDE) [Suspect]

REACTIONS (2)
  - INFECTION [None]
  - PNEUMONIA [None]
